FAERS Safety Report 18032432 (Version 1)
Quarter: 2020Q3

REPORT INFORMATION
  Report Type: Spontaneous
  Country: CA (occurrence: CA)
  Receive Date: 20200716
  Receipt Date: 20200716
  Transmission Date: 20201103
  Serious: Yes (Hospitalization, Other)
  Sender: FDA-Public Use
  Company Number: CA-PFIZER INC-2020268531

PATIENT

DRUGS (3)
  1. NARDIL [Suspect]
     Active Substance: PHENELZINE SULFATE
     Indication: SOCIAL ANXIETY DISORDER
     Dosage: UNK
     Dates: start: 1995
  2. NARDIL [Suspect]
     Active Substance: PHENELZINE SULFATE
     Indication: POST-TRAUMATIC STRESS DISORDER
  3. NARDIL [Suspect]
     Active Substance: PHENELZINE SULFATE
     Indication: DEPRESSION

REACTIONS (1)
  - Drug dependence [Unknown]
